FAERS Safety Report 20637307 (Version 1)
Quarter: 2022Q1

REPORT INFORMATION
  Report Type: Spontaneous
  Country: US (occurrence: US)
  Receive Date: 20220325
  Receipt Date: 20220325
  Transmission Date: 20220423
  Serious: No
  Sender: FDA-Public Use
  Company Number: US-PFIZER INC-2021727769

PATIENT
  Age: 77 Year
  Sex: Female
  Weight: 68.04 kg

DRUGS (1)
  1. IBRANCE [Suspect]
     Active Substance: PALBOCICLIB
     Indication: Breast cancer metastatic
     Dosage: 125 MG, CYCLIC (ONE TABLET BY MOUTH DAILY FOR 21 DAYS AND OFF SEVEN DAYS)
     Route: 048
     Dates: start: 20210605, end: 20210617

REACTIONS (2)
  - Neoplasm progression [Not Recovered/Not Resolved]
  - Cancer pain [Unknown]

NARRATIVE: CASE EVENT DATE: 20210616
